FAERS Safety Report 25817964 (Version 1)
Quarter: 2025Q3

REPORT INFORMATION
  Report Type: Spontaneous
  Country: US (occurrence: US)
  Receive Date: 20250918
  Receipt Date: 20250918
  Transmission Date: 20251021
  Serious: No
  Sender: BLUEPRINT MEDICINES
  Company Number: US-Blueprint Medicines Corporation-2025-AER-02012

PATIENT
  Age: 16 Year
  Sex: Female

DRUGS (2)
  1. AYVAKIT [Suspect]
     Active Substance: AVAPRITINIB
     Indication: Nervous system neoplasm
     Route: 065
     Dates: start: 20250707
  2. AYVAKIT [Suspect]
     Active Substance: AVAPRITINIB
     Indication: Endocrine neoplasm

REACTIONS (2)
  - Off label use [Unknown]
  - Hair colour changes [Unknown]

NARRATIVE: CASE EVENT DATE: 20250707
